FAERS Safety Report 16763350 (Version 1)
Quarter: 2019Q3

REPORT INFORMATION
  Report Type: Spontaneous
  Country: GB (occurrence: GB)
  Receive Date: 20190902
  Receipt Date: 20190902
  Transmission Date: 20191005
  Serious: Yes (Life-Threatening, Hospitalization)
  Sender: FDA-Public Use
  Company Number: GB-TEVA-2005-CZ-00356

PATIENT
  Age: 51 Year
  Sex: Male
  Weight: 77.6 kg

DRUGS (1)
  1. IBUPROFEN TABLETS BP 400 MG [Suspect]
     Active Substance: IBUPROFEN
     Dosage: 2000 MILLIGRAM DAILY;
     Route: 048
     Dates: start: 20050616, end: 20050616

REACTIONS (3)
  - Acute kidney injury [Recovering/Resolving]
  - Rhabdomyolysis [Recovering/Resolving]
  - Hypercalcaemia [Recovering/Resolving]

NARRATIVE: CASE EVENT DATE: 20050616
